FAERS Safety Report 14140136 (Version 1)
Quarter: 2017Q4

REPORT INFORMATION
  Report Type: Report from Study
  Country: US (occurrence: US)
  Receive Date: 20171030
  Receipt Date: 20171030
  Transmission Date: 20180321
  Serious: No
  Sender: FDA-Public Use
  Company Number: PHEH2017US034973

PATIENT
  Sex: Female

DRUGS (1)
  1. RECLAST [Suspect]
     Active Substance: ZOLEDRONIC ACID
     Indication: PRODUCT USED FOR UNKNOWN INDICATION
     Route: 041

REACTIONS (7)
  - Rash macular [Unknown]
  - Chills [Unknown]
  - Chromaturia [Unknown]
  - Pain [Unknown]
  - Pyrexia [Unknown]
  - Peripheral swelling [Unknown]
  - Joint swelling [Unknown]
